FAERS Safety Report 13923653 (Version 1)
Quarter: 2017Q3

REPORT INFORMATION
  Report Type: Report from Study
  Country: US (occurrence: US)
  Receive Date: 20170831
  Receipt Date: 20170831
  Transmission Date: 20171127
  Serious: Yes (Other)
  Sender: FDA-Public Use
  Company Number: US-SHIRE-US201720228

PATIENT
  Age: 60 Year
  Sex: Female

DRUGS (1)
  1. HUMAN NORMAL IMMUNOGLOBULIN; LIQUID [Suspect]
     Active Substance: HUMAN IMMUNOGLOBULIN G
     Indication: PRIMARY IMMUNODEFICIENCY SYNDROME
     Dosage: FIRST INFUSION
     Route: 058

REACTIONS (8)
  - Hyperhidrosis [Unknown]
  - Peripheral swelling [Unknown]
  - Urticaria [Unknown]
  - Infusion site swelling [Unknown]
  - Diarrhoea [Unknown]
  - Vomiting [Unknown]
  - Procedural complication [Unknown]
  - Laryngitis [Unknown]

NARRATIVE: CASE EVENT DATE: 20170824
